FAERS Safety Report 8328468-9 (Version None)
Quarter: 2012Q2

REPORT INFORMATION
  Report Type: 
  Country: None (occurrence: None)
  Receive Date: 20120502
  Receipt Date: 20120502
  Transmission Date: 20120825
  Serious: Yes (Hospitalization)
  Sender: FDA-Public Use
  Company Number: None

PATIENT
  Sex: Male
  Weight: 108.9 kg

DRUGS (4)
  1. IND 106658 [Concomitant]
  2. FLUOROURACIL [Suspect]
     Indication: OESOPHAGEAL ADENOCARCINOMA
     Dosage: |DOSAGETEXT: 750MG/M2/DAY||STRENGTH: 50MG/ML||FREQ: Q28D OVER 96 HOURS||ROUTE: INTRAVENOUS (NOT OTHE
     Route: 042
     Dates: start: 20120423, end: 20120427
  3. CISPLATIN [Suspect]
     Indication: OESOPHAGEAL ADENOCARCINOMA
     Dosage: |DOSAGETEXT: 60 MG/M2||STRENGTH: 100MG/100ML||FREQ: Q28D||ROUTE: INTRAVENOUS (NOT OTHERWISE SPECIFIE
     Route: 042
     Dates: start: 20120423, end: 20120423
  4. PANITUMUMAB 1.5MG/KG [Concomitant]
     Route: 051

REACTIONS (4)
  - MUSCULOSKELETAL DISCOMFORT [None]
  - HYPOTENSION [None]
  - TREMOR [None]
  - ATRIAL FIBRILLATION [None]
